FAERS Safety Report 5129121-5 (Version None)
Quarter: 2006Q4

REPORT INFORMATION
  Report Type: 
  Country: None (occurrence: None)
  Receive Date: 20061011
  Receipt Date: 20060922
  Transmission Date: 20070319
  Serious: Yes (Other)
  Sender: FDA-Public Use
  Company Number: CA200602002752

PATIENT
  Age: 87 Year
  Sex: Female

DRUGS (9)
  1. FORTEO [Suspect]
     Indication: OSTEOPOROSIS
     Dosage: 20 UG, DAILY (1/D);
     Dates: start: 20051021, end: 20060201
  2. FORTEO [Suspect]
     Indication: OSTEOPOROSIS
     Dosage: 20 UG, DAILY (1/D);
     Dates: start: 20060301
  3. FORTEO [Concomitant]
  4. FORTEO [Concomitant]
  5. WARFARIN SODIUM [Concomitant]
  6. EZETROL (EZETIMIBE) [Concomitant]
  7. CRESTOR [Concomitant]
  8. CALCIUM GLUCONATE [Concomitant]
  9. VITAMIN D [Concomitant]

REACTIONS (1)
  - RENAL CELL CARCINOMA STAGE UNSPECIFIED [None]
